FAERS Safety Report 11248124 (Version 1)
Quarter: 2015Q3

REPORT INFORMATION
  Report Type: Spontaneous
  Country: RU (occurrence: RU)
  Receive Date: 20150708
  Receipt Date: 20150708
  Transmission Date: 20151125
  Serious: Yes (Hospitalization)
  Sender: FDA-Public Use
  Company Number: RU-IPSEN BIOPHARMACEUTICALS, INC.-2015-6057

PATIENT
  Age: 62 Year

DRUGS (2)
  1. DYSPORT 500 UNITES SPEYWOOD [Suspect]
     Active Substance: ABOBOTULINUMTOXINA
     Indication: TORTICOLLIS
     Dosage: 1000 UNITS
     Route: 065
     Dates: start: 20150212, end: 20150212
  2. CLONAZEPAM. [Concomitant]
     Active Substance: CLONAZEPAM
     Indication: BLOOD PRESSURE INCREASED
     Dosage: NOT REPORTED
     Route: 065

REACTIONS (2)
  - Myocardial infarction [Unknown]
  - Panic attack [Unknown]

NARRATIVE: CASE EVENT DATE: 20150215
